FAERS Safety Report 17690876 (Version 1)
Quarter: 2020Q2

REPORT INFORMATION
  Report Type: Spontaneous
  Country: CA (occurrence: CA)
  Receive Date: 20200422
  Receipt Date: 20200422
  Transmission Date: 20200714
  Serious: Yes (Other)
  Sender: FDA-Public Use
  Company Number: CA-ROCHE-2586328

PATIENT
  Age: 59 Year
  Sex: Female

DRUGS (2)
  1. BEVACIZUMAB. [Suspect]
     Active Substance: BEVACIZUMAB
     Indication: PRODUCT USED FOR UNKNOWN INDICATION
     Route: 042
  2. LUCENTIS [Suspect]
     Active Substance: RANIBIZUMAB
     Indication: PRODUCT USED FOR UNKNOWN INDICATION
     Route: 031

REACTIONS (9)
  - Dysphonia [Unknown]
  - Pharyngeal oedema [Unknown]
  - Photopsia [Unknown]
  - Condition aggravated [Unknown]
  - Age-related macular degeneration [Unknown]
  - Dry throat [Unknown]
  - Throat tightness [Unknown]
  - Cough [Unknown]
  - Headache [Unknown]
